FAERS Safety Report 6687236-4 (Version None)
Quarter: 2010Q2

REPORT INFORMATION
  Report Type: 
  Country: None (occurrence: None)
  Receive Date: 20100419
  Receipt Date: 20100120
  Transmission Date: 20101027
  Serious: No
  Sender: FDA-Public Use
  Company Number: US-ABBOTT-10P-163-0623062-00

PATIENT

DRUGS (1)
  1. ZEMPLAR [Suspect]
     Indication: RENAL DISORDER
     Route: 042
     Dates: start: 20091201

REACTIONS (1)
  - HYPERVITAMINOSIS [None]
